FAERS Safety Report 18989618 (Version 2)
Quarter: 2022Q4

REPORT INFORMATION
  Report Type: Report from Study
  Country: JP (occurrence: JP)
  Receive Date: 20210309
  Receipt Date: 20221006
  Transmission Date: 20230113
  Serious: Yes (Other)
  Sender: FDA-Public Use
  Company Number: JP-BIOGEN-2020BI00875062

PATIENT
  Age: 2 Month
  Sex: Male
  Weight: 3.9 kg

DRUGS (11)
  1. SPINRAZA [Suspect]
     Active Substance: NUSINERSEN
     Indication: Spinal muscular atrophy
     Route: 050
     Dates: start: 20200110, end: 20200110
  2. SPINRAZA [Suspect]
     Active Substance: NUSINERSEN
     Route: 050
     Dates: start: 20200124, end: 20200124
  3. SPINRAZA [Suspect]
     Active Substance: NUSINERSEN
     Route: 050
     Dates: start: 20200207, end: 20200207
  4. SPINRAZA [Suspect]
     Active Substance: NUSINERSEN
     Route: 050
     Dates: start: 20200313, end: 20200313
  5. EMLA [Concomitant]
     Active Substance: LIDOCAINE\PRILOCAINE
     Indication: Anaesthesia procedure
     Route: 050
     Dates: start: 20200110, end: 20200313
  6. THIOPENTAL [Concomitant]
     Active Substance: THIOPENTAL
     Indication: Anaesthesia procedure
     Route: 050
     Dates: start: 20200110, end: 20200313
  7. CARBOCYSTEINE [Concomitant]
     Active Substance: CARBOCYSTEINE
     Indication: Spinal muscular atrophy
     Dosage: 90-120 MG
     Route: 050
  8. MUCOSAL [Concomitant]
     Indication: Spinal muscular atrophy
     Dosage: 3-4 MG
     Route: 050
  9. HERBALS [Concomitant]
     Active Substance: HERBALS
     Indication: Sedative therapy
     Route: 050
     Dates: end: 20200227
  10. TSUMURA GOREISAN EXTRACT GRANULES FOR ETHICAL USE [Concomitant]
     Indication: Polyuria
     Route: 050
     Dates: end: 20200228
  11. MIYA-BM [Concomitant]
     Active Substance: CLOSTRIDIUM BUTYRICUM SPORES STRAIN M-55
     Indication: Enterocolitis
     Route: 050
     Dates: end: 20200303

REACTIONS (3)
  - Gastric haemorrhage [Recovered/Resolved]
  - Haematuria [Recovered/Resolved]
  - Anaemia [Recovered/Resolved]

NARRATIVE: CASE EVENT DATE: 20200117
